FAERS Safety Report 4336505-1 (Version None)
Quarter: 2004Q2

REPORT INFORMATION
  Report Type: 
  Country: None (occurrence: None)
  Receive Date: 20040412
  Receipt Date: 20040310
  Transmission Date: 20050107
  Serious: Yes (Life-Threatening, Other)
  Sender: FDA-Public Use
  Company Number: 200410539DE

PATIENT
  Age: 76 Year
  Sex: Female

DRUGS (9)
  1. LANTUS [Suspect]
     Indication: DIABETES MELLITUS
     Dosage: DOSE: 0-0-0-40
     Route: 058
     Dates: end: 20040101
  2. HUMINSULIN PROFIL I [Concomitant]
     Indication: DIABETES MELLITUS
     Dosage: DOSE: 12-12-12-0
     Route: 058
  3. L-THYROXIN [Concomitant]
     Indication: HYPOTHYROIDISM
     Route: 048
  4. DILATREND [Concomitant]
     Dosage: DOSE: 0-0-1-0
  5. ENALAPRIL 5 [Concomitant]
     Dosage: DOSE: 2-0-0-0
  6. ASPIRIN [Concomitant]
     Dosage: DOSE: 0-0-0-1
  7. UNAT COR [Concomitant]
     Dosage: DOSE: 1-1-0-0
  8. DEXIUM [Concomitant]
     Dosage: DOSE: 1-0-0-0
  9. SORTIS [Concomitant]
     Dosage: DOSE: 0-0-1-0

REACTIONS (1)
  - HEPATIC NEOPLASM MALIGNANT [None]
